FAERS Safety Report 6689257-4 (Version None)
Quarter: 2010Q2

REPORT INFORMATION
  Report Type: 
  Country: None (occurrence: None)
  Receive Date: 20100416
  Receipt Date: 20100413
  Transmission Date: 20101027
  Serious: Yes (Other)
  Sender: FDA-Public Use
  Company Number: TRP_06917_2010

PATIENT
  Sex: Female

DRUGS (2)
  1. RIBASPHERE [Suspect]
     Indication: DRUG USE FOR UNKNOWN INDICATION
     Dosage: DF
  2. PEGASYS [Suspect]
     Indication: DRUG USE FOR UNKNOWN INDICATION
     Dosage: DF

REACTIONS (1)
  - NEOPLASM [None]
